FAERS Safety Report 22205936 (Version 1)
Quarter: 2023Q2

REPORT INFORMATION
  Report Type: Spontaneous
  Country: RS (occurrence: RS)
  Receive Date: 20230413
  Receipt Date: 20230413
  Transmission Date: 20230721
  Serious: Yes (Hospitalization, Other)
  Sender: FDA-Public Use
  Company Number: RS-BAYER-2022A069923

PATIENT

DRUGS (1)
  1. RIVAROXABAN [Suspect]
     Active Substance: RIVAROXABAN
     Indication: Product used for unknown indication
     Dosage: UNK
     Route: 048
     Dates: start: 201502

REACTIONS (3)
  - Pulmonary embolism [Unknown]
  - Nephrectomy [Unknown]
  - Therapeutic embolisation [Unknown]

NARRATIVE: CASE EVENT DATE: 20150604
